FAERS Safety Report 20191154 (Version 1)
Quarter: 2021Q4

REPORT INFORMATION
  Report Type: Spontaneous
  Country: JP (occurrence: JP)
  Receive Date: 20211216
  Receipt Date: 20211216
  Transmission Date: 20220304
  Serious: Yes (Other)
  Sender: FDA-Public Use
  Company Number: JP-TAKEDA-2021TUS079274

PATIENT
  Age: 5 Decade
  Sex: Female

DRUGS (1)
  1. INTUNIV [Suspect]
     Active Substance: GUANFACINE HYDROCHLORIDE
     Indication: Attention deficit hyperactivity disorder
     Dosage: 2 MILLIGRAM, QD
     Route: 048

REACTIONS (1)
  - Gaze palsy [Recovered/Resolved]
